FAERS Safety Report 9411969 (Version 1)
Quarter: 2013Q3

REPORT INFORMATION
  Report Type: Report from Study
  Country: CA (occurrence: CA)
  Receive Date: 20130722
  Receipt Date: 20130722
  Transmission Date: 20140515
  Serious: Yes (Other)
  Sender: FDA-Public Use
  Company Number: CA-JNJFOC-20130711941

PATIENT
  Age: 54 Year
  Sex: Male
  Weight: 83 kg

DRUGS (2)
  1. REMICADE [Suspect]
     Indication: CROHN^S DISEASE
     Route: 042
     Dates: start: 200512
  2. METHOTREXATE [Concomitant]
     Dosage: 6 TABLETS WEEKLY
     Route: 048

REACTIONS (4)
  - Rib fracture [Recovering/Resolving]
  - Fall [Recovered/Resolved]
  - Laceration [Recovered/Resolved]
  - Postoperative wound infection [Recovered/Resolved]
